FAERS Safety Report 5796542-7 (Version None)
Quarter: 2008Q2

REPORT INFORMATION
  Report Type: 
  Country: None (occurrence: None)
  Receive Date: 20080627
  Receipt Date: 20080612
  Transmission Date: 20081010
  Serious: Yes (Hospitalization)
  Sender: FDA-Public Use
  Company Number: US-001214

PATIENT
  Age: 58 Year
  Sex: Male

DRUGS (1)
  1. BARIUM (BARIUM SULPHATE) [Suspect]
     Indication: BARIUM SWALLOW
     Dosage: ORAL
     Route: 048

REACTIONS (10)
  - CANDIDIASIS [None]
  - CULTURE POSITIVE [None]
  - DYSPNOEA [None]
  - GENERAL PHYSICAL HEALTH DETERIORATION [None]
  - IMPLANT SITE EFFUSION [None]
  - KLEBSIELLA INFECTION [None]
  - PLEURAL EFFUSION [None]
  - PNEUMOTHORAX [None]
  - PULMONARY AIR LEAKAGE [None]
  - PYREXIA [None]
